FAERS Safety Report 4269696-1 (Version None)
Quarter: 2004Q1

REPORT INFORMATION
  Report Type: 
  Country: None (occurrence: None)
  Receive Date: 20040112
  Receipt Date: 20031230
  Transmission Date: 20041129
  Serious: Yes (Hospitalization)
  Sender: FDA-Public Use
  Company Number: 200314980FR

PATIENT
  Age: 82 Year
  Sex: Male
  Weight: 58 kg

DRUGS (14)
  1. PYRAZINAMIDE [Suspect]
     Indication: TUBERCULOSIS
     Dosage: 1.74 G/DAY PO
     Route: 048
     Dates: start: 20030915, end: 20030101
  2. PYRAZINAMIDE [Suspect]
     Dosage: 1.74 G/DAY PO
     Route: 048
     Dates: start: 20031003, end: 20031010
  3. PYRAZINAMIDE [Suspect]
     Indication: TUBERCULOSIS
     Dosage: PO
     Route: 048
     Dates: start: 20031001, end: 20031121
  4. RIFAMPICIN [Suspect]
     Dosage: PO
     Route: 048
     Dates: start: 20031001, end: 20031121
  5. RIFAMPICIN [Suspect]
     Indication: TUBERCULOSIS
     Dosage: 1 U/DAY PO
     Route: 048
     Dates: start: 20030915, end: 20030101
  6. RIFAMPICIN [Suspect]
     Dosage: 1 U/DAY PO
     Route: 048
     Dates: start: 20031003, end: 20031010
  7. RIFAMPICIN [Suspect]
     Indication: TUBERCULOSIS
     Dosage: PO
     Route: 048
     Dates: start: 20031001, end: 20031121
  8. ETHAMBUTOL DIHYDROCHLORIDE (MYAMBUTOL) FILM-COATED TABLETS [Suspect]
     Indication: TUBERCULOSIS
     Dosage: 1.2 G/DAY PO
     Route: 048
     Dates: start: 20030915, end: 20030101
  9. ETHAMBUTOL DIHYDROCHLORIDE (MYAMBUTOL0 FILM-COATED TABLETS [Suspect]
     Indication: TUBERCULOSIS
     Dosage: 1.2 G/DAY PO
     Route: 048
     Dates: start: 20031003, end: 20031010
  10. ETHAMBUTOL DIHYDROCHLORIDE (MYAMBUTOL) FILM-COATED TABLETS [Suspect]
     Indication: TUBERCULOSIS
     Dosage: PO
     Route: 048
     Dates: start: 20031001, end: 20031121
  11. ISONIAZID [Suspect]
     Indication: TUBERCULOSIS
     Dosage: 1 U/DAY PO
     Route: 047
     Dates: start: 20030915, end: 20030101
  12. ISONIAZID [Suspect]
     Indication: TUBERCULOSIS
     Dosage: 1 U.DAY PO
     Route: 048
     Dates: start: 20031003, end: 20031010
  13. ISONIAZID [Suspect]
     Indication: TUBERCULOSIS
     Dosage: PO
     Route: 048
     Dates: start: 20031001, end: 20031024
  14. ALLOPURINOL [Concomitant]

REACTIONS (4)
  - AGRANULOCYTOSIS [None]
  - DYSPEPSIA [None]
  - LIVER DISORDER [None]
  - PSEUDOMONAS INFECTION [None]
